FAERS Safety Report 5697715-4 (Version None)
Quarter: 2008Q2

REPORT INFORMATION
  Report Type: 
  Country: None (occurrence: None)
  Receive Date: 20080408
  Receipt Date: 20080403
  Transmission Date: 20081010
  Serious: Yes (Other)
  Sender: FDA-Public Use
  Company Number: B0511416A

PATIENT
  Age: 15 Year
  Sex: Male

DRUGS (5)
  1. RELENZA [Suspect]
     Indication: INFLUENZA
     Dosage: 10MG TWICE PER DAY
     Route: 055
     Dates: start: 20080229, end: 20080304
  2. CALONAL [Concomitant]
  3. MEDICON [Concomitant]
     Route: 048
  4. BISOLVON [Concomitant]
  5. POLARAMINE [Concomitant]

REACTIONS (4)
  - ABNORMAL BEHAVIOUR [None]
  - AMNESIA [None]
  - SCREAMING [None]
  - SPEECH DISORDER [None]
